FAERS Safety Report 8372460-5 (Version None)
Quarter: 2012Q2

REPORT INFORMATION
  Report Type: 
  Country: None (occurrence: None)
  Receive Date: 20120521
  Receipt Date: 20120514
  Transmission Date: 20120825
  Serious: No
  Sender: FDA-Public Use
  Company Number: US-PFIZER INC-2012117160

PATIENT
  Sex: Female
  Weight: 79.4 kg

DRUGS (2)
  1. CYTOMEL [Suspect]
     Indication: THYROID DISORDER
     Dosage: 2.5 UG (HALF TABLET OF 5MCG), 1X/DAY
     Route: 048
     Dates: start: 20120511, end: 20120512
  2. LEVOXYL [Suspect]
     Indication: THYROID DISORDER
     Dosage: UNK

REACTIONS (5)
  - NAUSEA [None]
  - VERTIGO [None]
  - DIZZINESS [None]
  - VOMITING [None]
  - GAIT DISTURBANCE [None]
